FAERS Safety Report 20119528 (Version 1)
Quarter: 2021Q4

REPORT INFORMATION
  Report Type: Spontaneous
  Country: CH (occurrence: CH)
  Receive Date: 20211126
  Receipt Date: 20211126
  Transmission Date: 20220303
  Serious: Yes (Hospitalization)
  Sender: FDA-Public Use
  Company Number: None

PATIENT
  Age: 74 Year
  Sex: Male

DRUGS (18)
  1. JANUMET [Suspect]
     Active Substance: METFORMIN HYDROCHLORIDE\SITAGLIPTIN PHOSPHATE
     Dosage: JANUMET? (SITGLIPTIN / METFORMIN) 50/500 MG ORALE EINNAHME 1-0-1-0 SEIT UNBEKANNTEM ZEITPUNKT BIS...
     Route: 048
     Dates: end: 20210322
  2. ATORVASTATIN [Suspect]
     Active Substance: ATORVASTATIN
     Dosage: ATORVASTATIN 40 MG ORALE EINNAHME 0-0-1-0, SEIT UNBEKANNTEM ZEITPUNKT BIS 22.03.2021
     Route: 048
     Dates: end: 20210322
  3. KEFZOL [Suspect]
     Active Substance: CEFAZOLIN SODIUM
     Indication: Antibiotic prophylaxis
     Dosage: KEFZOL? (CEFAZOLIN) 2 G INTRAVEN?SE APPLIKATION AM 09.04.2021 ; IN TOTAL
     Route: 041
     Dates: start: 20210409, end: 20210409
  4. GEMFIBROZIL [Suspect]
     Active Substance: GEMFIBROZIL
     Dosage: GEVILON? UNO (GEMFIBROZIL) 900 MG ORALE EINNAHME 0-0-1-0 SEIT UNBEKANNTEM ZEITPUNKT BIS 22.03.2021
     Route: 048
     Dates: end: 20210322
  5. GLICLAZIDE [Suspect]
     Active Substance: GLICLAZIDE
     Dosage: GLICLAZID 30 MG ORALE EINNAHME 1-0-1-0 SEIT UNBEKANNTEM ZEITPUNKT BIS 25.03.2021
     Route: 048
     Dates: end: 20210325
  6. TOUJEO [Concomitant]
     Active Substance: INSULIN GLARGINE
     Dosage: TOUJEO? (INSULIN GLARGIN) ABENDS 36-40 IE SUBKUTAN JE BLUTZUCKER
     Route: 058
  7. NOVORAPID [Concomitant]
     Active Substance: INSULIN ASPART
     Dosage: INSULIN NOVORAPID? (INSULIN ASPART) SUBKUTAN NACH SCHEMA ; AS NECESSARY
     Route: 058
  8. ASPIRIN [Concomitant]
     Active Substance: ASPIRIN
     Dosage: ASPIRIN? CARDIO (ACETYLSALICYLS?URE) 1-0-0-0
     Route: 048
  9. ESOMEPRAZOLE [Concomitant]
     Active Substance: ESOMEPRAZOLE
     Dosage: ESOMEP? MUPS (ESOMEPRAZOL) TABL 40 MG 1-0-0-0, W?HREND HOSPITALISATION WECHSEL AUF OMEPRAZOL 40MG...
     Route: 048
  10. RAMIPRIL [Concomitant]
     Active Substance: RAMIPRIL
     Dosage: TRIATEC? (RAMIPRIL) TABL 5 MG 2-0-0-0
     Route: 048
  11. AMLODIPINE [Concomitant]
     Active Substance: AMLODIPINE BESYLATE
     Dosage: AMLODIPIN (GENAUES PR?PARAT NICHT BEKANNT) 5 MG 1-0-0-0
     Route: 048
  12. TAMSULOSIN [Concomitant]
     Active Substance: TAMSULOSIN
     Dosage: TAMSULOSIN (GENAUES PR?PARAT NICHT BEKANNT) KAPS 0.4 MG 0-0-1-0
     Route: 048
  13. CREON [Concomitant]
     Active Substance: PANCRELIPASE AMYLASE\PANCRELIPASE LIPASE\PANCRELIPASE PROTEASE
     Dosage: CREON? (LIPASEN, PROTEASEN, AMYLASEN) 25000 KAPS 1-1-1-0
     Route: 048
  14. NOVALGIN (METAMIZOLE SODIUM) [Concomitant]
     Active Substance: METAMIZOLE SODIUM
     Dosage: NOVALGIN? (METAMIZOL) 500 MG 2-2-2-2
     Route: 048
  15. EUTHYROX [Concomitant]
     Active Substance: LEVOTHYROXINE SODIUM
     Dosage: EUTHYROX? (LEVOTHYROXIN) 100 MCG 07:00 UHR: 1 ST?CK
     Route: 048
  16. METOPROLOL SUCCINATE [Concomitant]
     Active Substance: METOPROLOL SUCCINATE
     Dosage: METO ZEROK? (METOPROLOL) RET 25 MG 1-0-0-0
     Route: 048
  17. CHOLECALCIFEROL [Concomitant]
     Active Substance: CHOLECALCIFEROL
     Dosage: VITAMIN D3 STREULI? (VITAMIN D3) 0.6-0-0-0
     Route: 048
  18. MUCO MEPHA [Concomitant]
     Dosage: MUCO MEPHA? (ACETYLCYSTEIN) BRAUSETABL 600 MG 1-0-0-0
     Route: 048

REACTIONS (1)
  - Drug-induced liver injury [Recovering/Resolving]

NARRATIVE: CASE EVENT DATE: 20210423
